FAERS Safety Report 23803277 (Version 1)
Quarter: 2024Q2

REPORT INFORMATION
  Report Type: Spontaneous
  Country: US (occurrence: None)
  Receive Date: 20240430
  Receipt Date: 20240430
  Transmission Date: 20240715
  Serious: Yes (Life-Threatening, Hospitalization)
  Sender: FDA-Public Use
  Company Number: None

PATIENT
  Age: 71 Year
  Sex: Male

DRUGS (1)
  1. AZITHROMYCIN [Suspect]
     Active Substance: AZITHROMYCIN
     Indication: Pneumonia
     Dates: start: 20230306

REACTIONS (3)
  - Alcohol withdrawal syndrome [None]
  - Myasthenia gravis crisis [None]
  - Acute respiratory failure [None]

NARRATIVE: CASE EVENT DATE: 20230320
